FAERS Safety Report 24161712 (Version 1)
Quarter: 2024Q3

REPORT INFORMATION
  Report Type: Spontaneous
  Country: GB (occurrence: GB)
  Receive Date: 20240801
  Receipt Date: 20240801
  Transmission Date: 20241016
  Serious: Yes (Other)
  Sender: ACCORD
  Company Number: None

PATIENT
  Age: 86 Year
  Sex: Female
  Weight: 54 kg

DRUGS (13)
  1. ROPINIROLE [Suspect]
     Active Substance: ROPINIROLE
     Indication: Ill-defined disorder
  2. FLUDROCORTISONE [Concomitant]
     Active Substance: FLUDROCORTISONE
     Indication: Ill-defined disorder
     Dosage: 3 DAILY
     Dates: start: 20240624
  3. LEVOTHYROXINE [Concomitant]
     Active Substance: LEVOTHYROXINE\LEVOTHYROXINE SODIUM
     Indication: Ill-defined disorder
     Dosage: TAKE ONE DAILY
     Dates: start: 20180823
  4. FENTANYL [Concomitant]
     Active Substance: FENTANYL\FENTANYL CITRATE
     Indication: Ill-defined disorder
     Dosage: ONE HALF TO ONE PATCH TO BE APPLIED EVERY 72 HO...
     Dates: start: 20180823
  5. ACETAMINOPHEN [Concomitant]
     Active Substance: ACETAMINOPHEN
     Indication: Ill-defined disorder
     Dosage: 2 FOUR TIMES A DAY AS REQUIRED
     Dates: start: 20200921
  6. WARFARIN SODIUM [Concomitant]
     Active Substance: WARFARIN SODIUM
     Indication: Ill-defined disorder
     Dosage: TAKE ACCORDING TO INR RESULT AS DIRECTED
     Dates: start: 20210311
  7. LANSOPRAZOLE [Concomitant]
     Active Substance: LANSOPRAZOLE
     Indication: Ill-defined disorder
     Dosage: TO BE TAKEN TWICE DAILY
     Dates: start: 20210412
  8. SINEMET [Concomitant]
     Active Substance: CARBIDOPA\LEVODOPA
     Indication: Ill-defined disorder
     Dosage: 2 AT 7AM, 1 AT 11AM,TWO AT 3PM AND ONE AT 7PM
     Dates: start: 20211213
  9. ATORVASTATIN [Concomitant]
     Active Substance: ATORVASTATIN
     Indication: Ill-defined disorder
     Dosage: TAKE ONE DAILY TO REDUCE CHOLESTEROL
     Dates: start: 20221017
  10. DIGOXIN [Concomitant]
     Active Substance: DIGOXIN
     Indication: Ill-defined disorder
     Dosage: TAKE ONE DAILY AT 8AM TO CONTROL HEARTH RATE
     Dates: start: 20230626
  11. SAFINAMIDE [Concomitant]
     Active Substance: SAFINAMIDE
     Indication: Ill-defined disorder
     Dosage: TAKE ONE DAILY AND IF TOLERATED TO INCREASE DOS...
     Dates: start: 20231115
  12. CARBIDOPA\LEVODOPA [Concomitant]
     Active Substance: CARBIDOPA\LEVODOPA
     Indication: Ill-defined disorder
     Dosage: ONE AT 10PM
     Dates: start: 20240520
  13. ROPINIROLE [Concomitant]
     Active Substance: ROPINIROLE
     Indication: Ill-defined disorder
     Dosage: ONE AT 10PM FOR 5 DAYS, THEN BD
     Dates: start: 20240520, end: 20240604

REACTIONS (2)
  - Visual impairment [Recovered/Resolved]
  - Nausea [Recovered/Resolved]
